FAERS Safety Report 4383692-5 (Version None)
Quarter: 2004Q2

REPORT INFORMATION
  Report Type: 
  Country: None (occurrence: None)
  Receive Date: 20040618
  Receipt Date: 20040610
  Transmission Date: 20050107
  Serious: Yes (Hospitalization)
  Sender: FDA-Public Use
  Company Number: 2004RL000068

PATIENT
  Sex: Female

DRUGS (5)
  1. RYTHMOL SR [Suspect]
     Dosage: PO
     Route: 048
     Dates: end: 20040101
  2. SINGULAIR [Suspect]
     Indication: ASTHMA
  3. STEROIDS [Concomitant]
  4. BRONCHODILATORS [Concomitant]
  5. CARDIZEM [Concomitant]

REACTIONS (1)
  - ALVEOLITIS [None]
